FAERS Safety Report 14607579 (Version 3)
Quarter: 2018Q2

REPORT INFORMATION
  Report Type: Report from Study
  Country: CA (occurrence: CA)
  Receive Date: 20180307
  Receipt Date: 20180512
  Transmission Date: 20180711
  Serious: Yes (Disabling, Other)
  Sender: FDA-Public Use
  Company Number: PHHY2018CA030510

PATIENT
  Sex: Male

DRUGS (8)
  1. RITALIN [Suspect]
     Active Substance: METHYLPHENIDATE HYDROCHLORIDE
     Indication: ATTENTION DEFICIT/HYPERACTIVITY DISORDER
     Dosage: 20 MG, QD
     Route: 048
     Dates: start: 2008
  2. MEZAVANT [Concomitant]
     Active Substance: MESALAMINE
     Indication: CROHN^S DISEASE
     Dosage: 4 DF, QD
     Route: 048
     Dates: start: 2015
  3. CORTISONE [Suspect]
     Active Substance: CORTISONE\HYDROCORTISONE
     Indication: CHRONIC SINUSITIS
     Dosage: FOR 3 MONTHS
     Route: 065
  4. ATACAND [Concomitant]
     Active Substance: CANDESARTAN CILEXETIL
     Indication: HYPERTENSION
     Dosage: 1 DF, QD
     Route: 048
     Dates: start: 2008
  5. LIPITOR [Concomitant]
     Active Substance: ATORVASTATIN CALCIUM
     Indication: DYSLIPIDAEMIA
     Dosage: 1 DF, QD
     Route: 048
     Dates: start: 201711
  6. LASIX [Concomitant]
     Active Substance: FUROSEMIDE
     Indication: OEDEMA
     Dosage: 1 DF, QD
     Route: 048
     Dates: start: 2017
  7. VICTOZA [Concomitant]
     Active Substance: LIRAGLUTIDE
     Indication: TYPE 2 DIABETES MELLITUS
     Dosage: 1 DF, QD
     Route: 048
     Dates: start: 2017
  8. SYMBICORT [Concomitant]
     Active Substance: BUDESONIDE\FORMOTEROL FUMARATE DIHYDRATE
     Indication: ASTHMA
     Dosage: 2 DF, BID (200/6 UG)
     Route: 055
     Dates: start: 2016

REACTIONS (20)
  - Dyspnoea [Unknown]
  - Quality of life decreased [Unknown]
  - Polyp [Unknown]
  - Cough [Unknown]
  - Flat affect [Unknown]
  - Chronic sinusitis [Unknown]
  - Sinus congestion [Unknown]
  - Sleep apnoea syndrome [Unknown]
  - Pulmonary congestion [Unknown]
  - Asthenia [Unknown]
  - Anosmia [Unknown]
  - Chronic rhinosinusitis with nasal polyps [Unknown]
  - Asthma [Unknown]
  - Middle insomnia [Unknown]
  - Secretion discharge [Unknown]
  - General physical health deterioration [Unknown]
  - Dyspnoea exertional [Unknown]
  - Ageusia [Unknown]
  - Oedema [Unknown]
  - Weight increased [Unknown]
